FAERS Safety Report 25360851 (Version 2)
Quarter: 2025Q2

REPORT INFORMATION
  Report Type: Spontaneous
  Country: US (occurrence: US)
  Receive Date: 20250527
  Receipt Date: 20250530
  Transmission Date: 20250716
  Serious: No
  Sender: TRIS PHARMA, INC.
  Company Number: US-Tris Pharma, Inc.-R25-AAA00731

PATIENT

DRUGS (3)
  1. ACETAMINOPHEN\HYDROCODONE BITARTRATE [Suspect]
     Active Substance: ACETAMINOPHEN\HYDROCODONE BITARTRATE
     Indication: Back pain
     Route: 048
     Dates: start: 2020
  2. ACETAMINOPHEN\HYDROCODONE BITARTRATE [Suspect]
     Active Substance: ACETAMINOPHEN\HYDROCODONE BITARTRATE
     Indication: Intervertebral disc degeneration
  3. EXCEDRIN EXTRA STRENGTH [Concomitant]
     Active Substance: ACETAMINOPHEN\ASPIRIN\CAFFEINE
     Indication: Back pain
     Route: 048
     Dates: start: 20250517

REACTIONS (8)
  - Euphoric mood [Not Recovered/Not Resolved]
  - Product substitution issue [Unknown]
  - Abdominal discomfort [Not Recovered/Not Resolved]
  - Underdose [Unknown]
  - Intentional overdose [Unknown]
  - Nausea [Not Recovered/Not Resolved]
  - Withdrawal syndrome [Not Recovered/Not Resolved]
  - Drug ineffective [Not Recovered/Not Resolved]

NARRATIVE: CASE EVENT DATE: 20250515
